FAERS Safety Report 14686106 (Version 1)
Quarter: 2018Q1

REPORT INFORMATION
  Report Type: Spontaneous
  Country: IN (occurrence: IN)
  Receive Date: 20180327
  Receipt Date: 20180327
  Transmission Date: 20180509
  Serious: Yes (Other)
  Sender: FDA-Public Use
  Company Number: IN-PFIZER INC-2018123194

PATIENT
  Age: 58 Year
  Sex: Female

DRUGS (2)
  1. PALBACE [Suspect]
     Active Substance: PALBOCICLIB
     Indication: BREAST CANCER METASTATIC
     Dosage: 125 MG, 1X/DAY
     Route: 048
     Dates: start: 20180304, end: 20180317
  2. FULVESTRANT. [Concomitant]
     Active Substance: FULVESTRANT
     Dosage: 500 MG, UNK

REACTIONS (8)
  - White blood cell count decreased [Unknown]
  - Dyspnoea [Unknown]
  - Infection [Unknown]
  - Dysphagia [Unknown]
  - Haemoglobin decreased [Unknown]
  - Mouth ulceration [Unknown]
  - Platelet count decreased [Unknown]
  - Cough [Unknown]

NARRATIVE: CASE EVENT DATE: 20180316
